FAERS Safety Report 13518284 (Version 1)
Quarter: 2017Q2

REPORT INFORMATION
  Report Type: Spontaneous
  Country: US (occurrence: US)
  Receive Date: 20170505
  Receipt Date: 20170505
  Transmission Date: 20170830
  Serious: No
  Sender: FDA-Public Use
  Company Number: None

PATIENT
  Age: 56 Year
  Sex: Female

DRUGS (1)
  1. EPCLUSA [Suspect]
     Active Substance: SOFOSBUVIR\VELPATASVIR

REACTIONS (6)
  - Drug dose omission [None]
  - Stress [None]
  - Abdominal pain upper [None]
  - Gastrooesophageal reflux disease [None]
  - Death of relative [None]
  - Headache [None]

NARRATIVE: CASE EVENT DATE: 20170423
